FAERS Safety Report 6573631-0 (Version None)
Quarter: 2010Q1

REPORT INFORMATION
  Report Type: 
  Country: None (occurrence: None)
  Receive Date: 20100208
  Receipt Date: 20100203
  Transmission Date: 20100710
  Serious: Yes (Hospitalization)
  Sender: FDA-Public Use
  Company Number: GB-ROCHE-683356

PATIENT
  Sex: Male
  Weight: 65.9 kg

DRUGS (4)
  1. CAPECITABINE [Suspect]
     Indication: COLORECTAL CANCER
     Dosage: LAST DOSE PRIOR TO SAE: 20 JAN 2010
     Route: 048
     Dates: start: 20091006
  2. BEVACIZUMAB [Suspect]
     Indication: COLORECTAL CANCER
     Dosage: FORM: INFUSION, LAST DOSE PRIOR TO SAE: 20 JAN 2010
     Route: 042
     Dates: start: 20091006
  3. TERBINAFINE [Concomitant]
     Indication: ANTIFUNGAL TREATMENT
     Dosage: START DATE: 2010
     Route: 048
  4. PYRIDOXINE [Concomitant]
     Indication: RASH
     Dosage: START DATE: 2010
     Route: 048

REACTIONS (1)
  - INTESTINAL OBSTRUCTION [None]
